FAERS Safety Report 23919916 (Version 3)
Quarter: 2024Q2

REPORT INFORMATION
  Report Type: Spontaneous
  Country: EG (occurrence: EG)
  Receive Date: 20240530
  Receipt Date: 20240612
  Transmission Date: 20240716
  Serious: Yes (Other)
  Sender: FDA-Public Use
  Company Number: EG-BoehringerIngelheim-2024-BI-030124

PATIENT
  Age: 41 Year
  Sex: Male
  Weight: 95 kg

DRUGS (10)
  1. ALTEPLASE [Suspect]
     Active Substance: ALTEPLASE
     Indication: Deep vein thrombosis
     Dosage: THEN HE USED THE CATHETER TO INJECT ACTILYSE WITH DOSE 2 MM/HR. FOR 25 HR. TAKE ACTILYSE WITH HEPARI
     Route: 065
     Dates: start: 20230307, end: 20230308
  2. ENOXAPARIN SODIUM [Concomitant]
     Active Substance: ENOXAPARIN SODIUM
     Indication: Product used for unknown indication
     Dosage: CLEXANE 140 MG (40 AM + 100 PM)
     Dates: start: 20230305
  3. ENOXAPARIN SODIUM [Concomitant]
     Active Substance: ENOXAPARIN SODIUM
     Dosage: CLEXANE 140 MG (40 AM + 100 PM)
     Dates: start: 20230306
  4. ENOXAPARIN SODIUM [Concomitant]
     Active Substance: ENOXAPARIN SODIUM
     Dosage: 400 MG (200 AM + 200 PM)
     Dates: start: 20230308
  5. ENOXAPARIN SODIUM [Concomitant]
     Active Substance: ENOXAPARIN SODIUM
     Dates: start: 20230309
  6. ENOXAPARIN SODIUM [Concomitant]
     Active Substance: ENOXAPARIN SODIUM
     Dates: start: 20230310
  7. HEPARIN [Concomitant]
     Active Substance: HEPARIN SODIUM
     Indication: Product used for unknown indication
     Dosage: ON 07.3.2023 --}  HEPARIN 5000 I.U./ML 6 AMP (FOR 25 HR)
     Dates: start: 20230307
  8. HEPARIN [Concomitant]
     Active Substance: HEPARIN SODIUM
     Dosage: ON 10.3.2023 --} HEPARIN 5000 I.U./ML 2 AMP
     Dates: start: 20230310
  9. TICAGRELOR [Concomitant]
     Active Substance: TICAGRELOR
     Indication: Product used for unknown indication
     Dosage: BRILIQUE 90MG (2 TABS)
     Dates: start: 20230308
  10. ASPIRIN [Concomitant]
     Active Substance: ASPIRIN
     Dosage: ASPOCID 75MG (4 TAB)
     Dates: start: 20230308

REACTIONS (5)
  - Paraplegia [Not Recovered/Not Resolved]
  - Pituitary haemorrhage [Unknown]
  - Spinal cord haematoma [Unknown]
  - Urinary retention [Not Recovered/Not Resolved]
  - Back pain [Recovered/Resolved with Sequelae]

NARRATIVE: CASE EVENT DATE: 20230307
